FAERS Safety Report 9686713 (Version 1)
Quarter: 2013Q4

REPORT INFORMATION
  Report Type: Spontaneous
  Country: US (occurrence: US)
  Receive Date: 20131113
  Receipt Date: 20131113
  Transmission Date: 20140711
  Serious: Yes (Other)
  Sender: FDA-Public Use
  Company Number: US-PFIZER INC-2013321957

PATIENT
  Sex: Female

DRUGS (1)
  1. AMLODIPINE BESILATE [Suspect]
     Dosage: UNK

REACTIONS (5)
  - Cardiac failure congestive [Unknown]
  - Fluid retention [Unknown]
  - Rash [Unknown]
  - Headache [Unknown]
  - Weight increased [Unknown]
